FAERS Safety Report 7088128-1 (Version None)
Quarter: 2010Q4

REPORT INFORMATION
  Report Type: 
  Country: None (occurrence: None)
  Receive Date: 20101026
  Receipt Date: 20101012
  Transmission Date: 20110411
  Serious: No
  Sender: FDA-Public Use
  Company Number: 2010-00896

PATIENT
  Sex: Female

DRUGS (2)
  1. ZICAM COLD REMEDY GEL SWABS [Suspect]
     Indication: NASOPHARYNGITIS
     Dosage: AS DIRECTED LATE 2008 - EARLY 2009
     Dates: start: 20080101, end: 20090101
  2. ZICAM COLD REMEDY NASAL GEL [Suspect]
     Indication: NASOPHARYNGITIS
     Dosage: AS DIRECTED LATE 2008 - EARLY 2009
     Dates: start: 20080101, end: 20090101

REACTIONS (2)
  - AGEUSIA [None]
  - ANOSMIA [None]
